FAERS Safety Report 9756655 (Version 1)
Quarter: 2013Q4

REPORT INFORMATION
  Report Type: Other
  Country: GB (occurrence: GB)
  Receive Date: 20131213
  Receipt Date: 20131213
  Transmission Date: 20140711
  Serious: Yes (Life-Threatening, Hospitalization)
  Sender: FDA-Public Use
  Company Number: GB-BRISTOL-MYERS SQUIBB COMPANY-19910157

PATIENT
  Age: 50 Year
  Sex: Female

DRUGS (2)
  1. HYDROXYCARBAMIDE [Suspect]
     Indication: THROMBOCYTOPENIA
  2. ALCOHOL [Suspect]

REACTIONS (4)
  - Overdose [Unknown]
  - Coma [Unknown]
  - Bone marrow failure [Recovering/Resolving]
  - Oculogyric crisis [Recovering/Resolving]
